FAERS Safety Report 19879956 (Version 2)
Quarter: 2021Q4

REPORT INFORMATION
  Report Type: Report from Study
  Country: SE (occurrence: SE)
  Receive Date: 20210924
  Receipt Date: 20211223
  Transmission Date: 20220304
  Serious: Yes (Hospitalization)
  Sender: FDA-Public Use
  Company Number: SE-JNJFOC-20210856091

PATIENT
  Age: 56 Year
  Sex: Female
  Weight: 138.5 kg

DRUGS (7)
  1. PONESIMOD [Suspect]
     Active Substance: PONESIMOD
     Indication: Relapsing-remitting multiple sclerosis
     Dosage: RANDOMIZATION
     Route: 065
     Dates: start: 20091126
  2. PONESIMOD [Suspect]
     Active Substance: PONESIMOD
     Dosage: RANDOMIZATION
     Route: 065
     Dates: start: 20200518
  3. PONESIMOD [Suspect]
     Active Substance: PONESIMOD
     Dosage: EXTENSION
     Route: 065
     Dates: start: 20210526
  4. CANDESARTAN CILEXETIL\HYDROCHLOROTHIAZIDE [Concomitant]
     Active Substance: CANDESARTAN CILEXETIL\HYDROCHLOROTHIAZIDE
     Indication: Hypertension
     Dosage: DOSE: 8 MG/12.5 MG
     Dates: start: 20210304, end: 20210626
  5. BNT 162 [Concomitant]
     Indication: COVID-19 prophylaxis
     Route: 030
     Dates: start: 20210506, end: 20210506
  6. BNT 162 [Concomitant]
     Route: 030
     Dates: start: 20210617, end: 20210617
  7. CANDESARTAN [Concomitant]
     Active Substance: CANDESARTAN
     Indication: Hypertension
     Dates: start: 20210627

REACTIONS (1)
  - Pulmonary embolism [Recovered/Resolved]

NARRATIVE: CASE EVENT DATE: 20210601
